FAERS Safety Report 16676125 (Version 1)
Quarter: 2019Q3

REPORT INFORMATION
  Report Type: Spontaneous
  Country: US (occurrence: US)
  Receive Date: 20190807
  Receipt Date: 20190807
  Transmission Date: 20191004
  Serious: Yes (Other)
  Sender: FDA-Public Use
  Company Number: US-ABBVIE-19K-163-2876026-00

PATIENT

DRUGS (1)
  1. HUMIRA [Suspect]
     Active Substance: ADALIMUMAB
     Indication: HIDRADENITIS
     Route: 058
     Dates: start: 2017

REACTIONS (9)
  - Surgery [Unknown]
  - Anxiety [Unknown]
  - Depression [Unknown]
  - Frustration tolerance decreased [Unknown]
  - Skin disorder [Unknown]
  - Mental fatigue [Unknown]
  - Hidradenitis [Unknown]
  - Therapeutic product effect decreased [Unknown]
  - Asthenia [Unknown]

NARRATIVE: CASE EVENT DATE: 2019
